FAERS Safety Report 5928119-4 (Version None)
Quarter: 2008Q4

REPORT INFORMATION
  Report Type: 
  Country: None (occurrence: None)
  Receive Date: 20081023
  Receipt Date: 20081013
  Transmission Date: 20090506
  Serious: Yes (Hospitalization)
  Sender: FDA-Public Use
  Company Number: US-PURDUE-USA_2002_0003217

PATIENT
  Age: 30 Year
  Sex: Male
  Weight: 118 kg

DRUGS (10)
  1. OXYCONTIN [Suspect]
     Indication: PAIN
     Dosage: 10 MG, BID
     Route: 048
     Dates: start: 19991117
  2. KLONOPIN [Concomitant]
     Indication: ANXIETY
     Dosage: 2 UNK, DAILY
     Route: 065
  3. COLCHICINE [Concomitant]
     Indication: GOUTY ARTHRITIS
     Dosage: 6 MG, BID
     Route: 065
  4. ALLOPURINOL [Concomitant]
     Indication: DRUG USE FOR UNKNOWN INDICATION
     Dosage: 300 MG, DAILY
     Route: 065
  5. VIOXX [Concomitant]
     Indication: DRUG USE FOR UNKNOWN INDICATION
     Dosage: 12.5 MG, BID
     Route: 065
  6. LOTRONEX                           /01482801/ [Concomitant]
     Indication: DRUG USE FOR UNKNOWN INDICATION
     Dosage: 1 UNK, BID
     Route: 065
  7. INDOMETHACIN                       /00003801/ [Concomitant]
     Indication: DRUG USE FOR UNKNOWN INDICATION
     Dosage: 15 MG, BID
     Route: 065
  8. MEDROL [Concomitant]
     Indication: DRUG USE FOR UNKNOWN INDICATION
     Dosage: UNK, UNK
     Route: 065
  9. OXYCONTIN [Suspect]
     Indication: PAIN
     Dosage: 20 MG, BID
     Route: 048
     Dates: start: 19991217
  10. BACTROBAN [Concomitant]
     Indication: DRUG USE FOR UNKNOWN INDICATION
     Dosage: UNK, UNK
     Route: 061

REACTIONS (6)
  - ABDOMINAL PAIN [None]
  - DRUG INEFFECTIVE [None]
  - DYSPNOEA [None]
  - HAEMATOCHEZIA [None]
  - NEURALGIA [None]
  - VOMITING [None]
